FAERS Safety Report 9107321 (Version 2)
Quarter: 2013Q3

REPORT INFORMATION
  Report Type: Report from Study
  Country: CA (occurrence: CA)
  Receive Date: 20130221
  Receipt Date: 20130718
  Transmission Date: 20140515
  Serious: Yes (Hospitalization)
  Sender: FDA-Public Use
  Company Number: CA-JNJFOC-20130207987

PATIENT
  Age: 62 Year
  Sex: Male
  Weight: 77.11 kg

DRUGS (7)
  1. REMICADE [Suspect]
     Indication: CROHN^S DISEASE
     Route: 042
     Dates: start: 2009
  2. CIPRO [Concomitant]
     Route: 048
  3. FERROUS GLUCONATE [Concomitant]
     Route: 048
  4. PARIET [Concomitant]
     Route: 048
  5. ATIVAN [Concomitant]
     Route: 048
  6. TEMAZEPAM [Concomitant]
     Route: 065
  7. CALCIUM [Concomitant]
     Route: 048

REACTIONS (3)
  - Mesenteric vein thrombosis [Unknown]
  - Thrombosis [Unknown]
  - Weight decreased [Unknown]
